FAERS Safety Report 22630428 (Version 1)
Quarter: 2023Q2

REPORT INFORMATION
  Report Type: Spontaneous
  Country: US (occurrence: US)
  Receive Date: 20230622
  Receipt Date: 20230622
  Transmission Date: 20230721
  Serious: No
  Sender: FDA-Public Use
  Company Number: US-MYLANLABS-2023M1059510

PATIENT

DRUGS (1)
  1. LIPITOR [Suspect]
     Active Substance: ATORVASTATIN CALCIUM
     Indication: Product used for unknown indication
     Dosage: 10 MILLIGRAM
     Route: 065
     Dates: start: 20230505

REACTIONS (7)
  - Sleep disorder [Unknown]
  - Pruritus [Unknown]
  - Herpes zoster [Unknown]
  - Condition aggravated [Unknown]
  - Eye pain [Unknown]
  - Headache [Unknown]
  - Fatigue [Unknown]
